FAERS Safety Report 19849629 (Version 1)
Quarter: 2021Q3

REPORT INFORMATION
  Report Type: Report from Study
  Country: CA (occurrence: CA)
  Receive Date: 20210917
  Receipt Date: 20210917
  Transmission Date: 20211014
  Serious: Yes (Other)
  Sender: FDA-Public Use
  Company Number: CA-HLS-202108416

PATIENT
  Age: 48 Year
  Sex: Female

DRUGS (2)
  1. CLOZARIL [Suspect]
     Active Substance: CLOZAPINE
     Indication: HALLUCINATION, AUDITORY
     Dosage: 50 MG AT BEDTIME
     Route: 048
     Dates: start: 20210505
  2. CLOZARIL [Suspect]
     Active Substance: CLOZAPINE
     Indication: AGGRESSION
     Dosage: 50 MG AT BEDTIME
     Route: 048
     Dates: start: 20210505

REACTIONS (8)
  - Off label use [Unknown]
  - Tachycardia [Unknown]
  - Intellectual disability [Unknown]
  - Aggression [Unknown]
  - Crohn^s disease [Unknown]
  - Dizziness [Unknown]
  - Orthostatic hypotension [Unknown]
  - Schizophrenia [Unknown]
